FAERS Safety Report 5917255-4 (Version None)
Quarter: 2008Q4

REPORT INFORMATION
  Report Type: 
  Country: None (occurrence: None)
  Receive Date: 20081009
  Receipt Date: 20081006
  Transmission Date: 20090506
  Serious: Yes (Other)
  Sender: FDA-Public Use
  Company Number: ADE2008-0331

PATIENT
  Age: 47 Year
  Sex: Female

DRUGS (2)
  1. MINOCYCLINE HCL [Suspect]
     Indication: APHTHOUS STOMATITIS
  2. MINOCYCLINE HCL [Suspect]
     Indication: MOUTH ULCERATION

REACTIONS (3)
  - GINGIVAL DISCOLOURATION [None]
  - THYROID CANCER [None]
  - TOOTH DISCOLOURATION [None]
